FAERS Safety Report 11555686 (Version 5)
Quarter: 2016Q2

REPORT INFORMATION
  Report Type: Report from Study
  Country: US (occurrence: US)
  Receive Date: 20150925
  Receipt Date: 20160523
  Transmission Date: 20160815
  Serious: Yes (Hospitalization, Other)
  Sender: FDA-Public Use
  Company Number: US-ALEXION PHARMACEUTICALS INC-A201503601

PATIENT
  Age: 70 Year
  Sex: Male
  Weight: 125 kg

DRUGS (2)
  1. CARDIZEM [Concomitant]
     Active Substance: DILTIAZEM HYDROCHLORIDE
     Indication: ATRIAL FIBRILLATION
     Dosage: UNK
     Route: 065
     Dates: end: 20151009
  2. SOLIRIS [Suspect]
     Active Substance: ECULIZUMAB
     Indication: PAROXYSMAL NOCTURNAL HAEMOGLOBINURIA
     Dosage: 900 MG, Q2W
     Route: 042

REACTIONS (18)
  - Tongue ulceration [Recovering/Resolving]
  - Large intestine perforation [Unknown]
  - Septic shock [Unknown]
  - Blood creatinine increased [Unknown]
  - Blood urea abnormal [Unknown]
  - Blood creatinine abnormal [Unknown]
  - Intra-abdominal haemorrhage [Unknown]
  - Abscess intestinal [Unknown]
  - Adrenal insufficiency [Unknown]
  - Hypertension [Unknown]
  - Colon cancer [Unknown]
  - Atrial fibrillation [Unknown]
  - Blood urea increased [Recovering/Resolving]
  - Glomerular filtration rate abnormal [Unknown]
  - Acute respiratory failure [Unknown]
  - Decreased appetite [Recovering/Resolving]
  - Purulent discharge [Unknown]
  - Brain natriuretic peptide abnormal [Unknown]

NARRATIVE: CASE EVENT DATE: 201509
